FAERS Safety Report 13346688 (Version 1)
Quarter: 2017Q1

REPORT INFORMATION
  Report Type: Spontaneous
  Country: US (occurrence: US)
  Receive Date: 20170317
  Receipt Date: 20170317
  Transmission Date: 20170428
  Serious: Yes (Other)
  Sender: FDA-Public Use
  Company Number: US-MYLANLABS-2017M1016780

PATIENT

DRUGS (2)
  1. PYRIDOSTIGMINE [Concomitant]
     Active Substance: PYRIDOSTIGMINE
     Indication: MYASTHENIA GRAVIS
     Route: 065
  2. PREDNISONE. [Suspect]
     Active Substance: PREDNISONE
     Indication: MYASTHENIA GRAVIS
     Dosage: HIGH DOSE
     Route: 065

REACTIONS (6)
  - Fibula fracture [Recovering/Resolving]
  - Rib fracture [Unknown]
  - Joint dislocation [Unknown]
  - Cartilage injury [Unknown]
  - Arthropathy [Unknown]
  - Nerve compression [Recovering/Resolving]
